FAERS Safety Report 8242822 (Version 2)
Quarter: 2013Q1

REPORT INFORMATION
  Report Type: Spontaneous
  Country: US (occurrence: US)
  Receive Date: 20111114
  Receipt Date: 20130215
  Transmission Date: 20140127
  Serious: Yes (Hospitalization, Other)
  Sender: FDA-Public Use
  Company Number: US-ROCHE-1012064

PATIENT
  Age: 24 None
  Sex: Male
  Weight: 68.1 kg

DRUGS (1)
  1. ACCUTANE [Suspect]
     Indication: ACNE
     Dosage: 40 MG TO 60 MG
     Route: 048
     Dates: start: 199910, end: 20000401

REACTIONS (6)
  - Small intestinal obstruction [Unknown]
  - Fistula [Unknown]
  - Crohn^s disease [Unknown]
  - Inflammatory bowel disease [Unknown]
  - Injury [Unknown]
  - Dry skin [Unknown]
